FAERS Safety Report 5973378-5 (Version None)
Quarter: 2008Q4

REPORT INFORMATION
  Report Type: 
  Country: None (occurrence: None)
  Receive Date: 20081201
  Receipt Date: 20080604
  Transmission Date: 20090506
  Serious: Yes (Other)
  Sender: FDA-Public Use
  Company Number: US-AMGEN-KDL276577

PATIENT
  Sex: Female
  Weight: 66.7 kg

DRUGS (15)
  1. ENBREL [Suspect]
     Indication: RHEUMATOID ARTHRITIS
     Route: 058
     Dates: start: 20060101, end: 20080401
  2. METHOTREXATE [Concomitant]
     Dates: start: 20040101
  3. FLONASE [Concomitant]
  4. RESTORIL [Concomitant]
  5. LEXAPRO [Concomitant]
  6. PREMARIN [Concomitant]
  7. NEURONTIN [Concomitant]
  8. VITAMIN B-12 [Concomitant]
  9. ICAPS [Concomitant]
  10. LYRICA [Concomitant]
  11. CALCIUM [Concomitant]
  12. ACIDOPHILUS [Concomitant]
  13. POTASSIUM CHLORIDE [Concomitant]
  14. CENTRUM [Concomitant]
  15. FOLIC ACID [Concomitant]

REACTIONS (2)
  - EPSTEIN-BARR VIRUS INFECTION [None]
  - INFECTIOUS MONONUCLEOSIS [None]
